FAERS Safety Report 17610714 (Version 2)
Quarter: 2020Q2

REPORT INFORMATION
  Report Type: Spontaneous
  Country: JP (occurrence: JP)
  Receive Date: 20200401
  Receipt Date: 20200407
  Transmission Date: 20200713
  Serious: Yes (Other)
  Sender: FDA-Public Use
  Company Number: JP-APOTEX-2020AP009418

PATIENT
  Age: 3 Decade
  Sex: Male

DRUGS (8)
  1. PAXIL [Suspect]
     Active Substance: PAROXETINE HYDROCHLORIDE
     Indication: DEPRESSION
     Dosage: 10 MG, QD
     Route: 048
     Dates: start: 20191220, end: 20191226
  2. PAXIL [Suspect]
     Active Substance: PAROXETINE HYDROCHLORIDE
     Dosage: 20 MG, QD
     Route: 048
     Dates: start: 20191227, end: 20200109
  3. WYPAX [Suspect]
     Active Substance: LORAZEPAM
     Dosage: 1 DF, UNK
     Route: 048
     Dates: start: 20200221, end: 20200227
  4. PAXIL [Suspect]
     Active Substance: PAROXETINE HYDROCHLORIDE
     Dosage: 30 MG, QD
     Route: 048
     Dates: start: 20200110, end: 20200116
  5. PAXIL [Suspect]
     Active Substance: PAROXETINE HYDROCHLORIDE
     Dosage: 40 MG, QD
     Route: 048
     Dates: start: 20200117
  6. PAXIL [Suspect]
     Active Substance: PAROXETINE HYDROCHLORIDE
     Dosage: 2 DF, UNK
     Route: 048
     Dates: start: 20200221, end: 20200227
  7. WYPAX [Suspect]
     Active Substance: LORAZEPAM
     Indication: DEPRESSION
     Dosage: 0.5 MG, QD, AFTER SUPPER
     Route: 065
     Dates: start: 20191220
  8. MAGMITT [Concomitant]
     Active Substance: MAGNESIUM OXIDE
     Indication: PRODUCT USED FOR UNKNOWN INDICATION
     Dosage: 1000 MG, QD, BEFORE BEDTIME
     Route: 065
     Dates: start: 20191220

REACTIONS (8)
  - Shock [Recovered/Resolved]
  - Nausea [Recovered/Resolved]
  - Eye movement disorder [Unknown]
  - Hyperhidrosis [Unknown]
  - Dizziness [Unknown]
  - Feeling cold [Unknown]
  - Hypotension [Recovered/Resolved]
  - Withdrawal syndrome [Recovered/Resolved]

NARRATIVE: CASE EVENT DATE: 20200303
